FAERS Safety Report 12842640 (Version 2)
Quarter: 2017Q2

REPORT INFORMATION
  Report Type: Spontaneous
  Country: DE (occurrence: DE)
  Receive Date: 20161013
  Receipt Date: 20170405
  Transmission Date: 20170830
  Serious: Yes (Other)
  Sender: FDA-Public Use
  Company Number: PHHY2016DE140281

PATIENT
  Sex: Male
  Weight: 80 kg

DRUGS (2)
  1. COSENTYX [Suspect]
     Active Substance: SECUKINUMAB
     Indication: PSORIASIS
     Dosage: 150 MG,PER WEEK FROM 1 TO 4 AND FROM 5TH WEEK MONTHLY
     Route: 058
     Dates: start: 20160301
  2. COSENTYX [Suspect]
     Active Substance: SECUKINUMAB
     Indication: PSORIATIC ARTHROPATHY
     Dosage: 150 MG, 150 MG,PER WEEK FROM 1 TO 4 AND FROM 5TH WEEK MONTHLY
     Route: 058
     Dates: end: 201606

REACTIONS (5)
  - Lower gastrointestinal haemorrhage [Unknown]
  - Diarrhoea [Unknown]
  - Colitis ulcerative [Recovered/Resolved]
  - Colitis ulcerative [Recovered/Resolved]
  - Haematochezia [Unknown]

NARRATIVE: CASE EVENT DATE: 201603
